FAERS Safety Report 7132673-7 (Version None)
Quarter: 2010Q4

REPORT INFORMATION
  Report Type: 
  Country: None (occurrence: None)
  Receive Date: 20101130
  Receipt Date: 20101130
  Transmission Date: 20110411
  Serious: Yes (Disabling)
  Sender: FDA-Public Use
  Company Number: None

PATIENT
  Age: 96 Day
  Sex: Male
  Weight: 2.179 kg

DRUGS (1)
  1. AVASTIN [Suspect]
     Indication: RETINOPATHY OF PREMATURITY
     Dosage: 0.625 -0.025 ML- EACH EYE ONCE INTRAOCULAR
     Route: 031

REACTIONS (2)
  - NECROTISING COLITIS [None]
  - OFF LABEL USE [None]
